FAERS Safety Report 19090656 (Version 4)
Quarter: 2021Q4

REPORT INFORMATION
  Report Type: Spontaneous
  Country: JP (occurrence: JP)
  Receive Date: 20210405
  Receipt Date: 20211011
  Transmission Date: 20220303
  Serious: Yes (Hospitalization)
  Sender: FDA-Public Use
  Company Number: JP-CHUGAI-A2021013059ROCHE

PATIENT
  Age: 76 Year
  Sex: Male
  Weight: 65 kg

DRUGS (16)
  1. TECENTRIQ [Suspect]
     Active Substance: ATEZOLIZUMAB
     Indication: Hepatocellular carcinoma
     Route: 041
     Dates: start: 20210210, end: 20210302
  2. TECENTRIQ [Suspect]
     Active Substance: ATEZOLIZUMAB
     Route: 041
     Dates: start: 202107
  3. TECENTRIQ [Suspect]
     Active Substance: ATEZOLIZUMAB
     Route: 041
     Dates: start: 202103
  4. AVASTIN [Suspect]
     Active Substance: BEVACIZUMAB
     Indication: Hepatocellular carcinoma
     Route: 041
     Dates: start: 20210210, end: 20210303
  5. AVASTIN [Suspect]
     Active Substance: BEVACIZUMAB
     Route: 041
     Dates: start: 202103, end: 2021
  6. WARFARIN [Suspect]
     Active Substance: WARFARIN
     Indication: Portal vein thrombosis
     Route: 065
     Dates: start: 20210401
  7. URSODIOL [Concomitant]
     Active Substance: URSODIOL
     Route: 065
  8. JUVELA [Concomitant]
     Active Substance: .ALPHA.-TOCOPHEROL\RETINOL
     Route: 065
  9. HALCION [Concomitant]
     Active Substance: TRIAZOLAM
     Route: 065
  10. AMLODIPINE BESYLATE [Concomitant]
     Active Substance: AMLODIPINE BESYLATE
     Route: 065
  11. OLMESARTAN MEDOXOMIL [Concomitant]
     Active Substance: OLMESARTAN MEDOXOMIL
     Route: 065
  12. IMIDAPRIL [Concomitant]
     Active Substance: IMIDAPRIL
     Route: 065
  13. RABEPRAZOLE SODIUM [Concomitant]
     Active Substance: RABEPRAZOLE SODIUM
     Route: 065
  14. REBAMIPIDE [Concomitant]
     Active Substance: REBAMIPIDE
     Route: 065
  15. CINAL [ASCORBIC ACID;CALCIUM PANTOTHENATE] [Concomitant]
     Route: 065
  16. AMINO ACIDS, SOURCE UNSPECIFIED [Concomitant]
     Active Substance: AMINO ACIDS, SOURCE UNSPECIFIED
     Dosage: UNK
     Route: 065
     Dates: start: 20190410

REACTIONS (2)
  - Portal vein thrombosis [Recovering/Resolving]
  - Pruritus [Unknown]

NARRATIVE: CASE EVENT DATE: 20210316
